FAERS Safety Report 6460567-9 (Version None)
Quarter: 2009Q4

REPORT INFORMATION
  Report Type: 
  Country: None (occurrence: None)
  Receive Date: 20091130
  Receipt Date: 20091120
  Transmission Date: 20100525
  Serious: Yes (Hospitalization)
  Sender: FDA-Public Use
  Company Number: FR-AMGEN-QUU375814

PATIENT
  Sex: Female
  Weight: 60 kg

DRUGS (19)
  1. NEUPOGEN [Suspect]
     Indication: CHEMOTHERAPY
     Route: 058
     Dates: start: 20090910, end: 20090912
  2. CIFLOX [Concomitant]
     Route: 042
     Dates: start: 20090810, end: 20090912
  3. VANCOMYCIN [Concomitant]
     Route: 042
     Dates: start: 20090810, end: 20090912
  4. BACTRIM [Concomitant]
     Route: 048
     Dates: end: 20090914
  5. CANCIDAS [Concomitant]
     Route: 042
     Dates: start: 20090903, end: 20090914
  6. TIENAM [Concomitant]
     Route: 042
     Dates: start: 20090810, end: 20090913
  7. CORTICOSTEROIDS [Concomitant]
  8. ZELITREX [Concomitant]
  9. PLITICAN [Concomitant]
  10. AMIKACIN [Concomitant]
  11. STILNOX [Concomitant]
  12. HEPARIN [Concomitant]
  13. ACTRAPID HUMAN [Concomitant]
  14. NEXIUM [Concomitant]
  15. VINCRISTINE [Concomitant]
  16. DAUNORUBICIN HCL [Concomitant]
  17. CYCLOPHOSPHAMIDE [Concomitant]
  18. PREDNISONE [Concomitant]
  19. ELSPAR [Concomitant]

REACTIONS (2)
  - PRURITUS [None]
  - RASH [None]
